FAERS Safety Report 16623513 (Version 1)
Quarter: 2019Q3

REPORT INFORMATION
  Report Type: Spontaneous
  Country: DE (occurrence: DE)
  Receive Date: 20190724
  Receipt Date: 20190724
  Transmission Date: 20191004
  Serious: Yes (Life-Threatening, Hospitalization, Other)
  Sender: FDA-Public Use
  Company Number: DE-TEVA-2019-DE-1080254

PATIENT
  Age: 66 Year
  Sex: Male
  Weight: 70 kg

DRUGS (17)
  1. JONOSTERIL PLASTIK 500ML [Concomitant]
     Dosage: 6/4/0/0/0 G/L, 1-1-0-0, SOLUTION FOR INJECTION/INFUSION
     Route: 042
  2. L-THYROXIN [Concomitant]
     Active Substance: LEVOTHYROXINE SODIUM
     Dosage: 50 MICROGRAMS, 1-0-0-0, TABLETS
     Route: 048
  3. CYTARABIN [Suspect]
     Active Substance: CYTARABINE
     Dosage: 2000 MG/M2, REGIMEN, SOLUTION FOR INJECTION/INFUSION
     Route: 042
  4. TORASEMID [Concomitant]
     Active Substance: TORSEMIDE
     Dosage: 20 MG, 0.5-0.5-0-0, TABLETS
     Route: 048
  5. COTRIMOXAZOL [Concomitant]
     Active Substance: SULFAMETHOXAZOLE\TRIMETHOPRIM
     Dosage: 800;160 MG, REGIMEN, TABLETS
     Route: 048
  6. NAC 600 [Concomitant]
     Dosage: 600 MG, 1-0-0-0, EFFERVESCENT TABLETS
     Route: 048
  7. FLUCLOXACILLIN [Concomitant]
     Active Substance: FLUCLOXACILLIN
     Dosage: 2 G, 1-1-1, SOLUTION FOR INJECTION/INFUSION
     Route: 042
  8. DIGITOXIN [Concomitant]
     Active Substance: DIGITOXIN
     Dosage: 0.1 MG, 1-1-1-0, SOLUTION FOR INJECTION/INFUSION
     Route: 042
  9. CISPLATIN. [Suspect]
     Active Substance: CISPLATIN
     Dosage: 100 MG/M2, REGIMEN, SOLUTION FOR INJECTION/INFUSION
     Route: 042
  10. VIGANTOLETTEN [Concomitant]
     Active Substance: CHOLECALCIFEROL
     Dosage: 1000 IU, 2-0-0-0, TABLETS
     Route: 048
  11. RITUXIMAB. [Suspect]
     Active Substance: RITUXIMAB
     Dosage: 375 MG/M2, REGIMEN, SOLUTION FOR INJECTION/INFUSION
     Route: 042
  12. PANTOPRAZOL [Concomitant]
     Active Substance: PANTOPRAZOLE SODIUM
     Dosage: 40 MG, 1-0-0-0, TABLETS
     Route: 048
  13. METOPROLOL. [Concomitant]
     Active Substance: METOPROLOL
     Dosage: 47.5 MG, 2-0-1-0, TABLETS
     Route: 048
  14. MUCOSOLVAN [Concomitant]
     Active Substance: AMBROXOL HYDROCHLORIDE
     Dosage: 4 ML, 1-1-0-0, JUICE
     Route: 048
  15. PIPERACILLIN/TAZOBACTAM [Concomitant]
     Active Substance: PIPERACILLIN SODIUM\TAZOBACTAM SODIUM
     Dosage: 4/0.5 G, 1-0-0-0, SOLUTION FOR INJECTION/INFUSION
     Route: 042
  16. FLUCONAZOL [Concomitant]
     Active Substance: FLUCONAZOLE
     Dosage: 100 MG, 1-0-0-0, CAPSULES
     Route: 048
  17. FONDAPARINUX [Concomitant]
     Active Substance: FONDAPARINUX
     Dosage: 2.5 MG, 0-0-1-0, SOLUTION FOR INJECTION/INFUSION
     Route: 058

REACTIONS (4)
  - Pyrexia [Unknown]
  - Sepsis [Unknown]
  - Empyema [Unknown]
  - Hypotension [Unknown]
